FAERS Safety Report 25210494 (Version 1)
Quarter: 2025Q2

REPORT INFORMATION
  Report Type: Report from Study
  Country: CN (occurrence: CN)
  Receive Date: 20250417
  Receipt Date: 20250417
  Transmission Date: 20250717
  Serious: Yes (Hospitalization)
  Sender: PFIZER
  Company Number: CN-PFIZER INC-PV202500027158

PATIENT
  Age: 61 Year
  Sex: Female
  Weight: 58.2 kg

DRUGS (32)
  1. ABROCITINIB [Suspect]
     Active Substance: ABROCITINIB
     Indication: Dermatitis atopic
     Dosage: 100 MG, 1X/DAY
     Dates: start: 20250218, end: 20250225
  2. COMPOUND LYSINE HYDROCHLORIDE AND ZINC GLUCONATE [Concomitant]
     Indication: Dermatitis atopic
     Route: 048
     Dates: start: 20250206
  3. BAI XUAN XIA TA RE [Concomitant]
     Indication: Dermatitis atopic
     Route: 048
     Dates: start: 20250206
  4. HERBALS\PANAX NOTOGINSENG ROOT EXTRACT [Concomitant]
     Active Substance: HERBALS\PANAX NOTOGINSENG ROOT EXTRACT
     Indication: Cerebrovascular accident
     Route: 048
     Dates: start: 2023
  5. HALCINONIDE [Concomitant]
     Active Substance: HALCINONIDE
     Indication: Dermatitis atopic
     Route: 061
     Dates: start: 20250206
  6. SU XIAO JIU XIN [Concomitant]
     Indication: Angina pectoris
     Route: 048
     Dates: start: 202407
  7. PU DI LAN XIAO YAN [Concomitant]
     Indication: Upper respiratory tract infection
     Route: 048
     Dates: start: 20250203
  8. DOXYCYCLINE HYCLATE [Concomitant]
     Active Substance: DOXYCYCLINE HYCLATE
     Indication: Haemoptysis
     Route: 048
     Dates: start: 20250219, end: 20250221
  9. CHAI QIN QING NING [Concomitant]
     Indication: Haemoptysis
     Route: 048
     Dates: start: 20250219, end: 20250220
  10. IOVERSOL [Concomitant]
     Active Substance: IOVERSOL
     Indication: Gastroenteritis
     Route: 042
     Dates: start: 20250225, end: 20250225
  11. BIFIDOBACTERIUM BIFIDUM [Concomitant]
     Active Substance: BIFIDOBACTERIUM BIFIDUM
     Indication: Gastroenteritis
     Route: 048
     Dates: start: 20250225, end: 20250225
  12. LEVOFLOXACIN [Concomitant]
     Active Substance: LEVOFLOXACIN
     Indication: Gastroenteritis
     Route: 042
     Dates: start: 20250225, end: 20250225
  13. METOCLOPRAMIDE DIHYDROCHLORIDE [Concomitant]
     Active Substance: METOCLOPRAMIDE DIHYDROCHLORIDE
     Indication: Gastroenteritis
     Route: 042
     Dates: start: 20250225, end: 20250225
  14. OMEPRAZOLE SODIUM [Concomitant]
     Active Substance: OMEPRAZOLE SODIUM
     Indication: Gastroenteritis
     Route: 042
     Dates: start: 20250225, end: 20250225
  15. PAPAVERINE HYDROCHLORIDE [Concomitant]
     Active Substance: PAPAVERINE HYDROCHLORIDE
     Indication: Gastroenteritis
     Route: 042
     Dates: start: 20250225, end: 20250225
  16. DROTAVERINE HYDROCHLORIDE [Concomitant]
     Active Substance: DROTAVERINE HYDROCHLORIDE
     Indication: Gastroenteritis
     Route: 030
     Dates: start: 20250225, end: 20250225
  17. GU BEN KE CHUAN [Concomitant]
     Indication: Pneumonia
     Route: 048
     Dates: start: 20250225, end: 20250225
  18. MOXIFLOXACIN HYDROCHLORIDE [Concomitant]
     Active Substance: MOXIFLOXACIN HYDROCHLORIDE
     Indication: Pneumonia
     Route: 048
     Dates: start: 20250225, end: 20250225
  19. KETOTIFEN FUMARATE [Concomitant]
     Active Substance: KETOTIFEN FUMARATE
     Indication: Pneumonia
     Route: 048
     Dates: start: 20250226
  20. CEFDINIR [Concomitant]
     Active Substance: CEFDINIR
     Indication: Pneumonia
     Route: 048
     Dates: start: 20250226
  21. HERBALS [Concomitant]
     Active Substance: HERBALS
     Indication: Pneumonia
     Route: 048
     Dates: start: 20250226
  22. JI ZHI [Concomitant]
     Indication: Bronchitis chronic
     Route: 048
     Dates: start: 20250226
  23. METHYLPREDNISOLONE SODIUM SUCCINATE [Concomitant]
     Active Substance: METHYLPREDNISOLONE SODIUM SUCCINATE
     Indication: Pneumonia
     Route: 042
     Dates: start: 20250226, end: 20250305
  24. CEFTAZIDIME [Concomitant]
     Active Substance: CEFTAZIDIME
     Indication: Pneumonia
     Route: 042
     Dates: start: 20250226, end: 20250305
  25. CEFTAZIDIME [Concomitant]
     Active Substance: CEFTAZIDIME
     Indication: Bronchitis chronic
  26. DEXAMETHASONE SODIUM PHOSPHATE [Concomitant]
     Active Substance: DEXAMETHASONE SODIUM PHOSPHATE
     Indication: Pneumonia
     Route: 030
     Dates: start: 20250226, end: 20250305
  27. DEXAMETHASONE SODIUM PHOSPHATE [Concomitant]
     Active Substance: DEXAMETHASONE SODIUM PHOSPHATE
     Indication: Bronchitis chronic
  28. RABEPRAZOLE SODIUM [Concomitant]
     Active Substance: RABEPRAZOLE SODIUM
     Indication: Chronic gastritis
     Route: 048
     Dates: start: 20250226
  29. DAN NING [Concomitant]
     Indication: Chronic gastritis
     Route: 048
     Dates: start: 20250226
  30. PANTOPRAZOLE SODIUM [Concomitant]
     Active Substance: PANTOPRAZOLE SODIUM
     Indication: Chronic gastritis
     Route: 042
     Dates: start: 20250226, end: 20250305
  31. PAPAVERINE HYDROCHLORIDE [Concomitant]
     Active Substance: PAPAVERINE HYDROCHLORIDE
     Indication: Chronic gastritis
     Route: 030
     Dates: start: 20250226, end: 20250305
  32. POTASSIUM CHLORIDE [Concomitant]
     Active Substance: POTASSIUM CHLORIDE
     Indication: Hypokalaemia
     Route: 048
     Dates: start: 20250226, end: 20250305

REACTIONS (1)
  - Arteriosclerosis coronary artery [Recovering/Resolving]

NARRATIVE: CASE EVENT DATE: 20250226
